FAERS Safety Report 13867088 (Version 1)
Quarter: 2017Q3

REPORT INFORMATION
  Report Type: Spontaneous
  Country: FR (occurrence: FR)
  Receive Date: 20170814
  Receipt Date: 20170814
  Transmission Date: 20171127
  Serious: Yes (Hospitalization)
  Sender: FDA-Public Use
  Company Number: FR-SA-2017SA147150

PATIENT
  Age: 67 Year
  Sex: Female

DRUGS (6)
  1. FOLINIC ACID [Suspect]
     Active Substance: LEUCOVORIN
     Indication: COLORECTAL ADENOCARCINOMA
     Route: 065
  2. FLUOROURACIL. [Suspect]
     Active Substance: FLUOROURACIL
     Indication: COLORECTAL ADENOCARCINOMA
     Route: 065
  3. FOLINIC ACID [Suspect]
     Active Substance: LEUCOVORIN
     Indication: COLORECTAL ADENOCARCINOMA
     Route: 065
  4. FLUOROURACIL. [Suspect]
     Active Substance: FLUOROURACIL
     Indication: COLORECTAL ADENOCARCINOMA
     Route: 065
  5. OXALIPLATIN. [Suspect]
     Active Substance: OXALIPLATIN
     Indication: COLORECTAL ADENOCARCINOMA
     Route: 065
  6. OXALIPLATIN. [Suspect]
     Active Substance: OXALIPLATIN
     Indication: COLORECTAL ADENOCARCINOMA
     Route: 065

REACTIONS (21)
  - Leukopenia [Recovering/Resolving]
  - Asthenia [Recovering/Resolving]
  - Septic shock [Recovering/Resolving]
  - Acute kidney injury [Recovering/Resolving]
  - Blood urea increased [Recovering/Resolving]
  - Blood bicarbonate decreased [Recovering/Resolving]
  - Alanine aminotransferase increased [Recovering/Resolving]
  - Bacteraemia [Recovering/Resolving]
  - Chills [Recovering/Resolving]
  - Blood creatinine increased [Recovering/Resolving]
  - Hepatocellular injury [Recovering/Resolving]
  - Diarrhoea [Recovering/Resolving]
  - Abdominal pain upper [Recovering/Resolving]
  - Bone marrow failure [Recovering/Resolving]
  - Cholecystitis [Recovering/Resolving]
  - Thrombocytopenia [Recovering/Resolving]
  - Aspartate aminotransferase increased [Recovering/Resolving]
  - Cholestasis [Recovering/Resolving]
  - Blood alkaline phosphatase increased [Recovering/Resolving]
  - Lactic acidosis [Recovering/Resolving]
  - Gamma-glutamyltransferase increased [Recovering/Resolving]
